FAERS Safety Report 25762244 (Version 2)
Quarter: 2025Q3

REPORT INFORMATION
  Report Type: Spontaneous
  Country: AU (occurrence: AU)
  Receive Date: 20250904
  Receipt Date: 20250922
  Transmission Date: 20251020
  Serious: Yes (Other)
  Sender: OTSUKA
  Company Number: AU-MMM-Otsuka-8TA26WK1

PATIENT

DRUGS (3)
  1. ABILIFY MAINTENA [Suspect]
     Active Substance: ARIPIPRAZOLE
     Indication: Product used for unknown indication
     Route: 030
  2. ZUCLOPENTHIXOL DECANOATE [Suspect]
     Active Substance: ZUCLOPENTHIXOL DECANOATE
     Indication: Schizophrenia
     Route: 030
  3. VALPROATE SODIUM [Concomitant]
     Active Substance: VALPROATE SODIUM
     Indication: Product used for unknown indication
     Route: 065

REACTIONS (14)
  - Obsessive-compulsive disorder [Unknown]
  - Sleep terror [Unknown]
  - Multiple organ dysfunction syndrome [Unknown]
  - Paralysis [Unknown]
  - Pallor [Unknown]
  - Vulvovaginal swelling [Unknown]
  - Deformity [Unknown]
  - Schizophreniform disorder [Unknown]
  - Thinking abnormal [Unknown]
  - Abdominal distension [Unknown]
  - Peripheral swelling [Unknown]
  - Hallucination [Unknown]
  - Nausea [Unknown]
  - Drug ineffective [Unknown]
